FAERS Safety Report 6193519-7 (Version None)
Quarter: 2009Q2

REPORT INFORMATION
  Report Type: 
  Country: None (occurrence: None)
  Receive Date: 20090514
  Receipt Date: 20090506
  Transmission Date: 20091009
  Serious: Yes (Hospitalization)
  Sender: FDA-Public Use
  Company Number: CIP09001038

PATIENT
  Age: 87 Year
  Sex: Female

DRUGS (3)
  1. ACTONEL [Suspect]
     Dosage: 1 SACHET CYCLIC DAILY, ORAL
     Route: 048
     Dates: start: 20071122
  2. CALTRATE /00108001/ (CALCIUM CARBONATE) [Concomitant]
  3. MAGNESIUM (MAGNESIUM) [Concomitant]

REACTIONS (4)
  - ANAEMIA [None]
  - BALANCE DISORDER [None]
  - GASTROINTESTINAL HAEMORRHAGE [None]
  - SPINAL FRACTURE [None]
